FAERS Safety Report 7507999-5 (Version None)
Quarter: 2011Q2

REPORT INFORMATION
  Report Type: 
  Country: None (occurrence: None)
  Receive Date: 20110519
  Receipt Date: 20110504
  Transmission Date: 20111010
  Serious: Yes (Hospitalization)
  Sender: FDA-Public Use
  Company Number: 2011MA005253

PATIENT
  Age: 45 Year
  Sex: Female

DRUGS (4)
  1. FLUTICASONE/SALMETEROL [Concomitant]
  2. FLUTICASONE PROPIONATE [Concomitant]
  3. GABAPENTIN [Concomitant]
  4. CARBAMAZEPINE [Suspect]
     Indication: NEURALGIA
     Dosage: 600 MG; OD

REACTIONS (1)
  - PANCREATITIS [None]
